FAERS Safety Report 10197792 (Version 3)
Quarter: 2014Q3

REPORT INFORMATION
  Report Type: Spontaneous
  Country: IT (occurrence: IT)
  Receive Date: 20140527
  Receipt Date: 20140730
  Transmission Date: 20150326
  Serious: Yes (Hospitalization)
  Sender: FDA-Public Use
  Company Number: IT-BRISTOL-MYERS SQUIBB COMPANY-20759643

PATIENT
  Age: 79 Year
  Sex: Male

DRUGS (10)
  1. COUMADIN [Suspect]
     Active Substance: WARFARIN SODIUM
     Indication: ANEURYSM
     Route: 048
     Dates: start: 20130914, end: 20140419
  2. RIVOTRIL [Concomitant]
     Active Substance: CLONAZEPAM
     Dosage: 1DF:2.5MG/ML SOLN ,4 DROPS
     Route: 048
  3. NOVONORM [Concomitant]
     Active Substance: REPAGLINIDE
     Dosage: 1DF:0.5MG TOTAL DOSE
     Route: 048
  4. CARDIRENE [Interacting]
     Active Substance: ASPIRIN DL-LYSINE
     Indication: ARTERIAL DISORDER
     Route: 048
     Dates: start: 20090401, end: 20140419
  5. CARDURA [Concomitant]
     Active Substance: DOXAZOSIN MESYLATE
     Dosage: TABS
  6. CATAPRESAN [Concomitant]
     Active Substance: CLONIDINE
     Route: 062
  7. MYSOLINE [Concomitant]
     Active Substance: PRIMIDONE
     Dosage: 250MG TOTAL DOSE
     Route: 048
  8. LANSOPRAZOLE. [Concomitant]
     Active Substance: LANSOPRAZOLE
     Dosage: TABS
     Route: 048
  9. MADOPAR [Concomitant]
     Active Substance: BENSERAZIDE HYDROCHLORIDE\LEVODOPA
     Dosage: 1DF:100+25 MG CAPS ,6UNIT
     Route: 048
  10. TRIATEC [Concomitant]
     Active Substance: RAMIPRIL
     Route: 048

REACTIONS (2)
  - Anaemia [Recovered/Resolved]
  - Gastritis erosive [Recovered/Resolved]

NARRATIVE: CASE EVENT DATE: 20140420
